FAERS Safety Report 11813650 (Version 1)
Quarter: 2015Q4

REPORT INFORMATION
  Report Type: Spontaneous
  Country: US (occurrence: None)
  Receive Date: 20151208
  Receipt Date: 20151208
  Transmission Date: 20160305
  Serious: No
  Sender: FDA-Public Use
  Company Number: None

PATIENT
  Age: 76 Year
  Sex: Female

DRUGS (1)
  1. GLEEVEC [Suspect]
     Active Substance: IMATINIB MESYLATE
     Indication: GASTROINTESTINAL STROMAL TUMOUR
     Dosage: 2 TABLETS QD ORAL
     Route: 048
     Dates: start: 20151106, end: 20151201

REACTIONS (3)
  - Pruritus [None]
  - Acne [None]
  - Discomfort [None]

NARRATIVE: CASE EVENT DATE: 20151120
